FAERS Safety Report 15735103 (Version 1)
Quarter: 2018Q4

REPORT INFORMATION
  Report Type: Spontaneous
  Country: US (occurrence: US)
  Receive Date: 20181203
  Receipt Date: 20181203
  Transmission Date: 20190205
  Serious: No
  Sender: FDA-Public Use
  Company Number: None

PATIENT
  Age: 68 Year
  Sex: Female

DRUGS (9)
  1. OCALIVA [Suspect]
     Active Substance: OBETICHOLIC ACID
     Indication: BILIARY CIRRHOSIS
     Route: 048
     Dates: start: 20170602
  2. PENICILLIN [Concomitant]
     Active Substance: PENICILLIN
  3. MIRALAX [Concomitant]
     Active Substance: POLYETHYLENE GLYCOL 3350
  4. MULTI-VIT [Concomitant]
     Active Substance: VITAMINS
  5. URSODIOL. [Concomitant]
     Active Substance: URSODIOL
  6. COLACE [Concomitant]
     Active Substance: DOCUSATE SODIUM
  7. MAGNESIOU [Concomitant]
  8. SENNA [Concomitant]
     Active Substance: SENNA LEAF\SENNOSIDES\SENNOSIDES A AND B
  9. FIBER [Concomitant]
     Active Substance: PSYLLIUM HUSK

REACTIONS (1)
  - Rash [None]
